FAERS Safety Report 14098856 (Version 2)
Quarter: 2017Q4

REPORT INFORMATION
  Report Type: Spontaneous
  Country: US (occurrence: US)
  Receive Date: 20171017
  Receipt Date: 20171025
  Transmission Date: 20180321
  Serious: No
  Sender: FDA-Public Use
  Company Number: US-GLAXOSMITHKLINE-US2017156826

PATIENT
  Age: 69 Year
  Sex: Male

DRUGS (21)
  1. ANORO ELLIPTA [Suspect]
     Active Substance: UMECLIDINIUM BROMIDE\VILANTEROL TRIFENATATE
     Indication: CHRONIC OBSTRUCTIVE PULMONARY DISEASE
     Dosage: 1 PUFF(S), QD
     Route: 055
     Dates: start: 201609
  2. CLONAZEPAN [Concomitant]
     Active Substance: CLONAZEPAM
  3. KETOCONAZOLE. [Concomitant]
     Active Substance: KETOCONAZOLE
  4. CLONIDINE. [Concomitant]
     Active Substance: CLONIDINE
  5. ISOSORBIDE. [Concomitant]
     Active Substance: ISOSORBIDE
  6. CYCLOBENZAPRINE. [Concomitant]
     Active Substance: CYCLOBENZAPRINE
  7. HYDROCHLOROTHIAZIDE AND LISINOPRIL [Concomitant]
     Active Substance: HYDROCHLOROTHIAZIDE\LISINOPRIL
  8. NABUMETONE. [Concomitant]
     Active Substance: NABUMETONE
  9. ALLOPURINOL. [Concomitant]
     Active Substance: ALLOPURINOL
  10. FENOFIBRATE. [Concomitant]
     Active Substance: FENOFIBRATE
  11. NITROGLYCERIN. [Concomitant]
     Active Substance: NITROGLYCERIN
  12. COLCRYS [Concomitant]
     Active Substance: COLCHICINE
  13. DICLOFENAC [Concomitant]
     Active Substance: DICLOFENAC
  14. FLUTICASONE PROPIONATE NASAL SPRAY [Concomitant]
     Active Substance: FLUTICASONE PROPIONATE
  15. OMEPRAZOLE. [Concomitant]
     Active Substance: OMEPRAZOLE
  16. NYSTATIN. [Concomitant]
     Active Substance: NYSTATIN
  17. QUETIAPINE. [Concomitant]
     Active Substance: QUETIAPINE
  18. METFORMIN [Concomitant]
     Active Substance: METFORMIN HYDROCHLORIDE
  19. HYDROCODONE [Concomitant]
     Active Substance: HYDROCODONE
  20. LEVOTHYROXINE. [Concomitant]
     Active Substance: LEVOTHYROXINE
  21. SERTRALINE [Concomitant]
     Active Substance: SERTRALINE HYDROCHLORIDE

REACTIONS (4)
  - Tendon rupture [Recovering/Resolving]
  - Ligament rupture [Recovering/Resolving]
  - Arthralgia [Recovering/Resolving]
  - Fall [Recovering/Resolving]

NARRATIVE: CASE EVENT DATE: 201707
